FAERS Safety Report 17054895 (Version 1)
Quarter: 2019Q4

REPORT INFORMATION
  Report Type: Spontaneous
  Country: US (occurrence: US)
  Receive Date: 20191120
  Receipt Date: 20191120
  Transmission Date: 20200122
  Serious: Yes (Other)
  Sender: FDA-Public Use
  Company Number: US-SA-2018SA068561

PATIENT
  Age: 54 Year
  Sex: Female
  Weight: 116 kg

DRUGS (11)
  1. ADRIAMYCIN [Concomitant]
     Active Substance: DOXORUBICIN HYDROCHLORIDE
  2. METFORMIN [Concomitant]
     Active Substance: METFORMIN HYDROCHLORIDE
  3. TAXOTERE [Suspect]
     Active Substance: DOCETAXEL
     Dosage: 165 MG,Q3W
     Route: 042
     Dates: start: 20140709, end: 20140709
  4. LEVEMIR [Concomitant]
     Active Substance: INSULIN DETEMIR
  5. NOVOLOG [Concomitant]
     Active Substance: INSULIN ASPART
  6. LYRICA [Concomitant]
     Active Substance: PREGABALIN
  7. NEOSAR [Concomitant]
     Active Substance: CYCLOPHOSPHAMIDE
  8. ERGOCALCIFEROL. [Concomitant]
     Active Substance: ERGOCALCIFEROL
  9. NAPROXEN. [Concomitant]
     Active Substance: NAPROXEN
  10. TAXOTERE [Suspect]
     Active Substance: DOCETAXEL
     Indication: BREAST CANCER FEMALE
     Dosage: 165 MG,Q3W
     Route: 042
     Dates: start: 20140529, end: 20140529
  11. LISINOPRIL. [Concomitant]
     Active Substance: LISINOPRIL

REACTIONS (1)
  - Alopecia [Not Recovered/Not Resolved]

NARRATIVE: CASE EVENT DATE: 201501
